FAERS Safety Report 6396555-0 (Version None)
Quarter: 2009Q4

REPORT INFORMATION
  Report Type: 
  Country: None (occurrence: None)
  Receive Date: 20091012
  Receipt Date: 20090929
  Transmission Date: 20100525
  Serious: Yes (Hospitalization, Other)
  Sender: FDA-Public Use
  Company Number: NSADSS2001000771

PATIENT
  Sex: Male
  Weight: 62.9 kg

DRUGS (7)
  1. REMICADE [Suspect]
     Route: 042
     Dates: start: 20000601, end: 20000901
  2. REMICADE [Suspect]
     Indication: CROHN'S DISEASE
     Route: 042
     Dates: start: 20000601, end: 20000901
  3. PREDNISONE [Concomitant]
     Indication: DRUG USE FOR UNKNOWN INDICATION
  4. INH [Concomitant]
     Indication: DRUG USE FOR UNKNOWN INDICATION
     Dates: start: 20001201
  5. RIFAMPIN [Concomitant]
     Indication: DRUG USE FOR UNKNOWN INDICATION
     Dates: start: 20001201
  6. PYRAZINAMIDE [Concomitant]
     Indication: DRUG USE FOR UNKNOWN INDICATION
     Dates: start: 20001201
  7. MERCAPTOPURINE [Concomitant]
     Route: 065

REACTIONS (6)
  - ANAEMIA [None]
  - CROHN'S DISEASE [None]
  - HEPATOSPLENOMEGALY [None]
  - HISTOPLASMOSIS DISSEMINATED [None]
  - LEUKOPENIA [None]
  - THROMBOCYTOPENIA [None]
